FAERS Safety Report 6937510-9 (Version None)
Quarter: 2010Q3

REPORT INFORMATION
  Report Type: 
  Country: None (occurrence: None)
  Receive Date: 20100823
  Receipt Date: 20100726
  Transmission Date: 20110219
  Serious: Yes (Hospitalization, Other)
  Sender: FDA-Public Use
  Company Number: PHEH2008US03781

PATIENT
  Sex: Female

DRUGS (17)
  1. AREDIA [Suspect]
  2. ZOMETA [Suspect]
  3. CHEMOTHERAPEUTICS,OTHER [Concomitant]
  4. RADIATION THERAPY [Concomitant]
  5. CHLORHEXIDINE GLUCONATE [Concomitant]
  6. COUMADIN [Concomitant]
  7. KLOR-CON [Concomitant]
  8. MAGNESIUM OXIDE [Concomitant]
  9. MELATONIN [Concomitant]
  10. NEXIUM [Concomitant]
  11. OXYCODONE [Concomitant]
  12. OXYCONTIN [Concomitant]
  13. PAXIL [Concomitant]
  14. PENICILLIN ^GRUNENTHAL^ [Concomitant]
  15. SENNA [Concomitant]
  16. YEAST [Concomitant]
  17. CEPHALEXIN [Concomitant]

REACTIONS (44)
  - ACTINOMYCES TEST POSITIVE [None]
  - ACUTE PSYCHOSIS [None]
  - AMNESIA [None]
  - ASTHENIA [None]
  - BONE DISORDER [None]
  - BREATH ODOUR [None]
  - CANDIDIASIS [None]
  - CELLULITIS [None]
  - DEBRIDEMENT [None]
  - DEEP VEIN THROMBOSIS [None]
  - DEFORMITY [None]
  - DELIRIUM [None]
  - DEPRESSED MOOD [None]
  - DISCOMFORT [None]
  - DIZZINESS [None]
  - DYSPNOEA [None]
  - GASTRIC BYPASS [None]
  - HALLUCINATION, AUDITORY [None]
  - HEADACHE [None]
  - HYPOKALAEMIA [None]
  - HYPOXIA [None]
  - INFECTION [None]
  - INTERSTITIAL LUNG DISEASE [None]
  - LUNG INFILTRATION [None]
  - MALIGNANT NEOPLASM PROGRESSION [None]
  - MUSCULOSKELETAL PAIN [None]
  - OEDEMA PERIPHERAL [None]
  - OSTEOMYELITIS [None]
  - OSTEONECROSIS OF JAW [None]
  - PAIN [None]
  - PAIN IN EXTREMITY [None]
  - PARAESTHESIA [None]
  - PARANOIA [None]
  - PNEUMONITIS [None]
  - RESPIRATORY FAILURE [None]
  - SEBORRHOEIC KERATOSIS [None]
  - SEQUESTRECTOMY [None]
  - SMALL INTESTINAL OBSTRUCTION [None]
  - SPEECH DISORDER [None]
  - SPINAL CORD DISORDER [None]
  - STOMATITIS [None]
  - THORACOTOMY [None]
  - TOOTH EXTRACTION [None]
  - URINARY TRACT INFECTION [None]
